FAERS Safety Report 10390259 (Version 4)
Quarter: 2014Q3

REPORT INFORMATION
  Report Type: Spontaneous
  Country: US (occurrence: US)
  Receive Date: 20140818
  Receipt Date: 20140926
  Transmission Date: 20150326
  Serious: Yes (Other)
  Sender: FDA-Public Use
  Company Number: US-SA-2014SA108611

PATIENT
  Age: 74 Year
  Sex: Female

DRUGS (3)
  1. APIDRA [Suspect]
     Active Substance: INSULIN GLULISINE
     Indication: TYPE 1 DIABETES MELLITUS
     Route: 065
  2. APIDRA [Suspect]
     Active Substance: INSULIN GLULISINE
     Indication: TYPE 1 DIABETES MELLITUS
     Dosage: FREQUENCY: THROUGHOUT THE DAY DOSE:110 UNIT(S)
     Route: 065
     Dates: start: 2000, end: 2014
  3. APIDRA [Suspect]
     Active Substance: INSULIN GLULISINE
     Indication: TYPE 1 DIABETES MELLITUS
     Dosage: FREQUENCY: THROUGHOUT THE DAY DOSE:110 UNIT(S)
     Route: 065
     Dates: start: 2000, end: 2014

REACTIONS (7)
  - Ulcer [Unknown]
  - Mass [Unknown]
  - Ketoacidosis [Unknown]
  - Insomnia [Unknown]
  - Drug ineffective [Unknown]
  - Hyperglycaemia [Recovering/Resolving]
  - Incorrect product storage [Unknown]

NARRATIVE: CASE EVENT DATE: 20140726
